FAERS Safety Report 8043330-7 (Version None)
Quarter: 2012Q1

REPORT INFORMATION
  Report Type: 
  Country: None (occurrence: None)
  Receive Date: 20120112
  Receipt Date: 20120103
  Transmission Date: 20120608
  Serious: Yes (Hospitalization)
  Sender: FDA-Public Use
  Company Number: FR-GLAXOSMITHKLINE-B0773761A

PATIENT
  Age: 60 Year
  Sex: Male

DRUGS (4)
  1. ARIXTRA [Suspect]
     Indication: THROMBOPHLEBITIS
     Dosage: 7.5MG PER DAY
     Route: 058
     Dates: start: 20111025
  2. PREVISCAN [Suspect]
     Indication: THROMBOPHLEBITIS
     Dosage: 20MG PER DAY
     Route: 048
     Dates: start: 20111025
  3. PERINDOPRIL ERBUMINE [Concomitant]
     Dosage: 2.5MG PER DAY
  4. CHONDROSULF [Concomitant]

REACTIONS (1)
  - MUSCLE HAEMORRHAGE [None]
